FAERS Safety Report 9669944 (Version 2)
Quarter: 2014Q2

REPORT INFORMATION
  Report Type: Spontaneous
  Country: US (occurrence: US)
  Receive Date: 20131105
  Receipt Date: 20140506
  Transmission Date: 20141212
  Serious: Yes (Death)
  Sender: FDA-Public Use
  Company Number: US-TMC-CABO-13003574

PATIENT
  Age: 78 Year
  Sex: Male
  Weight: 83.6 kg

DRUGS (8)
  1. COMETRIQ [Suspect]
     Indication: PROSTATE CANCER
     Dosage: 100 MG, QD
     Route: 048
     Dates: start: 20130808, end: 20130906
  2. LOSARTAN [Concomitant]
  3. METOPROLOL SUCCINATE [Concomitant]
  4. PREDNISONE [Concomitant]
  5. SYNTHROID [Concomitant]
  6. LIPITOR [Concomitant]
  7. OXYCONTIN [Concomitant]
  8. METAMUCIL [Concomitant]

REACTIONS (4)
  - Malignant neoplasm progression [Fatal]
  - Fatigue [Recovered/Resolved]
  - Stomatitis [Recovered/Resolved]
  - Off label use [Unknown]
